FAERS Safety Report 25717572 (Version 2)
Quarter: 2025Q3

REPORT INFORMATION
  Report Type: Report from Study
  Country: AU (occurrence: AU)
  Receive Date: 20250822
  Receipt Date: 20250825
  Transmission Date: 20251021
  Serious: Yes (Disabling)
  Sender: GILEAD
  Company Number: AU-GILEAD-2024-0694894

PATIENT
  Age: 51 Year
  Sex: Male

DRUGS (1)
  1. LENACAPAVIR [Suspect]
     Active Substance: LENACAPAVIR
     Indication: HIV infection
     Route: 058
     Dates: start: 20240611, end: 20240611

REACTIONS (2)
  - Injection site pain [Unknown]
  - Injection site mass [Recovered/Resolved]

NARRATIVE: CASE EVENT DATE: 20240611
